FAERS Safety Report 13240107 (Version 2)
Quarter: 2017Q2

REPORT INFORMATION
  Report Type: Spontaneous
  Country: US (occurrence: US)
  Receive Date: 20170216
  Receipt Date: 20170601
  Transmission Date: 20170830
  Serious: Yes (Hospitalization, Other)
  Sender: FDA-Public Use
  Company Number: US-GLAXOSMITHKLINE-US2017GSK021631

PATIENT
  Sex: Male

DRUGS (1)
  1. LAMICTAL XR [Suspect]
     Active Substance: LAMOTRIGINE
     Indication: SEIZURE
     Dosage: 25 MG, QD
     Route: 048
     Dates: start: 20141101

REACTIONS (9)
  - Pain [Unknown]
  - Toxic epidermal necrolysis [Unknown]
  - Blister [Unknown]
  - Stevens-Johnson syndrome [Unknown]
  - Erythema multiforme [Unknown]
  - Rash pruritic [Unknown]
  - Rash [Unknown]
  - Skin exfoliation [Unknown]
  - Rash pustular [Unknown]
